FAERS Safety Report 25661255 (Version 1)
Quarter: 2025Q3

REPORT INFORMATION
  Report Type: Spontaneous
  Country: US (occurrence: US)
  Receive Date: 20250808
  Receipt Date: 20250808
  Transmission Date: 20251020
  Serious: Yes (Life-Threatening, Hospitalization)
  Sender: PFIZER
  Company Number: US-PFIZER INC-202500159610

PATIENT
  Sex: Female

DRUGS (1)
  1. NURTEC ODT [Suspect]
     Active Substance: RIMEGEPANT SULFATE
     Indication: Migraine
     Dates: start: 202003

REACTIONS (8)
  - Vertebrobasilar artery dissection [Recovered/Resolved with Sequelae]
  - Occipital lobe stroke [Recovered/Resolved with Sequelae]
  - Cerebellar stroke [Recovered/Resolved with Sequelae]
  - Gait disturbance [Recovered/Resolved with Sequelae]
  - Fatigue [Not Recovered/Not Resolved]
  - Memory impairment [Not Recovered/Not Resolved]
  - Loss of personal independence in daily activities [Recovered/Resolved with Sequelae]
  - Nervous system disorder [Not Recovered/Not Resolved]

NARRATIVE: CASE EVENT DATE: 20240101
